FAERS Safety Report 15773144 (Version 1)
Quarter: 2018Q4

REPORT INFORMATION
  Report Type: Spontaneous
  Country: CA (occurrence: CA)
  Receive Date: 20181228
  Receipt Date: 20181228
  Transmission Date: 20190205
  Serious: No
  Sender: FDA-Public Use
  Company Number: CA-CELLTRION INC.-2018CA024954

PATIENT

DRUGS (3)
  1. INFLECTRA [Suspect]
     Active Substance: INFLIXIMAB-DYYB
     Dosage: 425 MG, (Q 0, 2, 6 WEEKS, THEN EVERY 6-8 WEEKS FOR MAINTENANCE); INTRAVENOUS
     Route: 042
     Dates: start: 20181217
  2. INFLECTRA [Suspect]
     Active Substance: INFLIXIMAB-DYYB
     Indication: RHEUMATOID ARTHRITIS
     Dosage: 400 MG, (Q 0, 2, 6 WEEKS, THEN EVERY 6-8 WEEKS FOR MAINTENANCE); INTRAVENOUS
     Route: 042
  3. INFLECTRA [Suspect]
     Active Substance: INFLIXIMAB-DYYB
     Dosage: 425 MG, (Q 0, 2, 6 WEEKS, THEN EVERY 6-8 WEEKS FOR MAINTENANCE); INTRAVENOUS
     Route: 042
     Dates: start: 20181217

REACTIONS (2)
  - Blood pressure fluctuation [Unknown]
  - Product use issue [Unknown]
